FAERS Safety Report 17190885 (Version 1)
Quarter: 2019Q4

REPORT INFORMATION
  Report Type: Spontaneous
  Country: US (occurrence: US)
  Receive Date: 20191220
  Receipt Date: 20191220
  Transmission Date: 20200122
  Serious: Yes (Disabling)
  Sender: FDA-Public Use
  Company Number: None

PATIENT
  Age: 28 Year
  Sex: Male
  Weight: 72 kg

DRUGS (3)
  1. LUNESTA [Concomitant]
     Active Substance: ESZOPICLONE
  2. FINASTERIDE 1MG [Suspect]
     Active Substance: FINASTERIDE
     Indication: ALOPECIA
  3. MULTI-VITAMIN [Concomitant]
     Active Substance: .ALPHA.-TOCOPHEROL ACETATE, DL-\ASCORBIC ACID\CYANOCOBALAMIN\FLUORIDE ION\FOLIC ACID\NIACIN\PYRIDOXINE\RIBOFLAVIN\THIAMINE\VITAMIN A\VITAMIN D

REACTIONS (3)
  - Insomnia [None]
  - Loss of libido [None]
  - Muscle twitching [None]

NARRATIVE: CASE EVENT DATE: 20190909
